FAERS Safety Report 6574476-8 (Version None)
Quarter: 2010Q1

REPORT INFORMATION
  Report Type: 
  Country: None (occurrence: None)
  Receive Date: 20100209
  Receipt Date: 20090826
  Transmission Date: 20100710
  Serious: No
  Sender: FDA-Public Use
  Company Number: A0804581A

PATIENT
  Age: 39 Year
  Sex: Female

DRUGS (6)
  1. PAXIL [Suspect]
     Indication: DEPRESSION
     Dosage: 20MG PER DAY
     Route: 048
     Dates: start: 20090825
  2. INDERAL [Concomitant]
  3. BIRTH CONTROL PILLS [Concomitant]
  4. BENADRYL [Concomitant]
  5. ROBAXIN [Concomitant]
  6. PERCOCET [Concomitant]

REACTIONS (1)
  - BURNING SENSATION [None]
